FAERS Safety Report 8931224 (Version 1)
Quarter: 2012Q4

REPORT INFORMATION
  Report Type: 
  Country: CA (occurrence: CA)
  Receive Date: 20121128
  Receipt Date: 20121128
  Transmission Date: 20130627
  Serious: Yes (Disabling)
  Sender: FDA-Public Use
  Company Number: CA-B.I. PHARMACEUTICALS,INC./RIDGEFIELD-2012-CN-02326CN

PATIENT
  Age: 79 Year
  Sex: Male
  Weight: 99.8 kg

DRUGS (5)
  1. PRADAX [Suspect]
     Dosage: 300 mg
     Route: 048
  2. ATENOLOL, BP [Concomitant]
     Route: 065
  3. AVAPRO [Concomitant]
     Route: 065
  4. CRESTOR [Concomitant]
     Route: 065
  5. FUROSEMIDE [Concomitant]
     Route: 065

REACTIONS (6)
  - Abdominal discomfort [Unknown]
  - Abdominal pain upper [Unknown]
  - Diarrhoea [Unknown]
  - Gastrooesophageal reflux disease [Unknown]
  - Nausea [Unknown]
  - Oesophageal pain [Unknown]
